FAERS Safety Report 5602609-6 (Version None)
Quarter: 2008Q1

REPORT INFORMATION
  Report Type: 
  Country: None (occurrence: None)
  Receive Date: 20080125
  Receipt Date: 20080117
  Transmission Date: 20080703
  Serious: Yes (Hospitalization)
  Sender: FDA-Public Use
  Company Number: FR-AVENTIS-200810651GDDC

PATIENT
  Age: 6 Year
  Sex: Male
  Weight: 17.4 kg

DRUGS (1)
  1. MINIRIN MELT [Suspect]
     Indication: ENURESIS
     Route: 060
     Dates: start: 20070501, end: 20070511

REACTIONS (1)
  - HAEMATURIA [None]
